FAERS Safety Report 9718925 (Version 1)
Quarter: 2013Q4

REPORT INFORMATION
  Report Type: Spontaneous
  Country: US (occurrence: None)
  Receive Date: 20131126
  Receipt Date: 20131126
  Transmission Date: 20140711
  Serious: Yes (Other)
  Sender: FDA-Public Use
  Company Number: 2013AP009750

PATIENT
  Age: 72 Year
  Sex: Female

DRUGS (6)
  1. ALENDRONIC ACID (ALENDRONIC ACID) [Suspect]
     Indication: PRODUCT USED FOR UNKNOWN INDICATION
     Dosage: BUCC; TOTAL
     Route: 002
     Dates: start: 20121130
  2. ADCAL-D3 (LEKOVIT CA) [Concomitant]
  3. ASPIRIN (ACETYLSALICYLIC ACID) [Concomitant]
  4. ATENOLOL (ATENOLOL) [Concomitant]
  5. ATORVASTATIN (ATORVASTATIN) [Concomitant]
  6. RAMIPRIL (RAMIPRIL) [Concomitant]

REACTIONS (5)
  - Jaundice [None]
  - Renal pain [None]
  - Fatigue [None]
  - Malaise [None]
  - Nausea [None]
